FAERS Safety Report 9388355 (Version 1)
Quarter: 2013Q3

REPORT INFORMATION
  Report Type: Spontaneous
  Country: US (occurrence: None)
  Receive Date: 20130703
  Receipt Date: 20130703
  Transmission Date: 20140515
  Serious: Yes (Death)
  Sender: FDA-Public Use
  Company Number: 1770242

PATIENT
  Age: 78 Year
  Sex: Male

DRUGS (4)
  1. PIPERACILLIN AND TAZOBACTAM [Suspect]
     Indication: DRUG THERAPY
  2. VANCOMYCIN HYDROCHLORIDE [Suspect]
     Indication: DRUG THERAPY
  3. OXYGEN [Concomitant]
  4. OTHER RESPIRATORY SYSTEM PRODUCTS [Concomitant]

REACTIONS (5)
  - Stenotrophomonas infection [None]
  - Ileus paralytic [None]
  - Hypotension [None]
  - Respiratory distress [None]
  - Nosocomial infection [None]
